FAERS Safety Report 18175093 (Version 1)
Quarter: 2020Q3

REPORT INFORMATION
  Report Type: Spontaneous
  Country: JP (occurrence: JP)
  Receive Date: 20200820
  Receipt Date: 20200820
  Transmission Date: 20201103
  Serious: No
  Sender: FDA-Public Use
  Company Number: JP-LUPIN PHARMACEUTICALS INC.-2020-02800

PATIENT
  Age: 63 Year
  Sex: Male

DRUGS (4)
  1. LANOCONAZOLE [Suspect]
     Active Substance: LANOCONAZOLE
     Indication: PRURITUS
  2. CLOBETASOL PROPIONATE OINTMENT [Suspect]
     Active Substance: CLOBETASOL PROPIONATE
     Indication: ERYTHEMA
     Dosage: UNK
     Route: 061
  3. CLOBETASOL PROPIONATE OINTMENT [Suspect]
     Active Substance: CLOBETASOL PROPIONATE
     Indication: PRURITUS
  4. LANOCONAZOLE [Suspect]
     Active Substance: LANOCONAZOLE
     Indication: ERYTHEMA
     Dosage: UNK
     Route: 061

REACTIONS (3)
  - Dermatitis contact [Unknown]
  - Condition aggravated [Recovered/Resolved]
  - Rash [Recovered/Resolved]
